FAERS Safety Report 24706465 (Version 3)
Quarter: 2024Q4

REPORT INFORMATION
  Report Type: Report from Study
  Country: BR (occurrence: BR)
  Receive Date: 20241206
  Receipt Date: 20241226
  Transmission Date: 20250115
  Serious: Yes (Hospitalization, Other)
  Sender: ALNYLAM PHARMACEUTICALS
  Company Number: BR-ALNYLAM PHARMACEUTICALS, INC.-ALN-2024-006779

PATIENT

DRUGS (2)
  1. GIVLAARI [Suspect]
     Active Substance: GIVOSIRAN SODIUM
     Indication: Porphyria acute
     Dosage: 201 MILLIGRAM, MONTHLY PRESENTATION: 189 MG PER ML
     Route: 058
     Dates: start: 202304, end: 202304
  2. GIVLAARI [Suspect]
     Active Substance: GIVOSIRAN SODIUM
     Dosage: UNK, MONTHLY, PRESENTATION: 189 MG PER ML
     Route: 058
     Dates: start: 20241026, end: 20241026

REACTIONS (5)
  - Porphyria acute [Unknown]
  - Weight fluctuation [Unknown]
  - Acne [Unknown]
  - Intentional dose omission [Unknown]
  - Drug ineffective [Unknown]

NARRATIVE: CASE EVENT DATE: 20241202
